FAERS Safety Report 5913349-8 (Version None)
Quarter: 2008Q4

REPORT INFORMATION
  Report Type: 
  Country: None (occurrence: None)
  Receive Date: 20081009
  Receipt Date: 20080930
  Transmission Date: 20090506
  Serious: Yes (Hospitalization, Other)
  Sender: FDA-Public Use
  Company Number: PHHY2008JP21801

PATIENT
  Age: 65 Year
  Sex: Male

DRUGS (3)
  1. VOLTAREN [Suspect]
     Indication: NASOPHARYNGITIS
     Route: 048
  2. PL (NON-PYRINE COLD PREPARATION) [Concomitant]
     Indication: NASOPHARYNGITIS
     Route: 048
  3. LEVOFLOXACIN [Concomitant]
     Indication: NASOPHARYNGITIS
     Route: 048

REACTIONS (15)
  - BLOOD CREATININE INCREASED [None]
  - BLOOD GLUCOSE ABNORMAL [None]
  - BLOOD INSULIN DECREASED [None]
  - BLOOD UREA INCREASED [None]
  - HYPOPHAGIA [None]
  - INSULIN C-PEPTIDE DECREASED [None]
  - LIP SWELLING [None]
  - ORAL MUCOSA EROSION [None]
  - POLYURIA [None]
  - PROTEIN URINE PRESENT [None]
  - RENAL FAILURE ACUTE [None]
  - THIRST [None]
  - TYPE 1 DIABETES MELLITUS [None]
  - URINE KETONE BODY [None]
  - WEIGHT DECREASED [None]
